FAERS Safety Report 7739579-0 (Version None)
Quarter: 2011Q3

REPORT INFORMATION
  Report Type: 
  Country: None (occurrence: None)
  Receive Date: 20110909
  Receipt Date: 20110825
  Transmission Date: 20111222
  Serious: Yes (Disabling, Other)
  Sender: FDA-Public Use
  Company Number: GB-WATSON-2011-13674

PATIENT
  Age: 34 Year
  Sex: Female
  Weight: 46 kg

DRUGS (9)
  1. LEVONORGESTREL [Suspect]
     Indication: CONTRACEPTION
     Dosage: 30 MG, DAILY
     Route: 065
     Dates: start: 20040101
  2. AMITRIPTYLINE HCL [Suspect]
     Indication: DEPRESSION
     Dosage: 150 MG, DAILY
     Route: 065
     Dates: start: 20060701
  3. CALCIUM CARBONATE [Suspect]
     Indication: OSTEOPENIA
     Dosage: 1 DF, QID
     Route: 065
     Dates: start: 19980101
  4. MULTI-VITAMINS [Concomitant]
     Indication: PRODUCT USED FOR UNKNOWN INDICATION
     Route: 065
  5. NIFEDIPINE [Suspect]
     Indication: RAYNAUD'S PHENOMENON
     Dosage: 5 MG, BID
     Route: 065
     Dates: start: 20040101
  6. LEVONORGESTREL [Suspect]
     Indication: OSTEOPENIA
     Route: 065
  7. AMITRIPTYLINE HCL [Suspect]
     Indication: INSOMNIA
     Route: 065
  8. PROVIGIL [Suspect]
     Indication: FATIGUE
     Dosage: 200 MG, DAILY
     Route: 048
     Dates: start: 20060201, end: 20060301
  9. PROVIGIL [Suspect]
     Indication: PRODUCT USED FOR UNKNOWN INDICATION
     Dosage: 200 MG, DAILY
     Route: 048
     Dates: start: 20061001, end: 20080204

REACTIONS (4)
  - DRUG INTERACTION [None]
  - ARTHRALGIA [None]
  - LUPUS-LIKE SYNDROME [None]
  - RASH ERYTHEMATOUS [None]
